FAERS Safety Report 5091073-4 (Version None)
Quarter: 2006Q3

REPORT INFORMATION
  Report Type: 
  Country: None (occurrence: None)
  Receive Date: 20060829
  Receipt Date: 20060202
  Transmission Date: 20061208
  Serious: Yes (Other)
  Sender: FDA-Public Use
  Company Number: 2006UW01819

PATIENT
  Age: 73 Year
  Sex: Female
  Weight: 52.2 kg

DRUGS (2)
  1. NEXIUM [Suspect]
     Indication: REFLUX OESOPHAGITIS
     Route: 048
     Dates: start: 20050201, end: 20050101
  2. ULTRAM [Concomitant]

REACTIONS (7)
  - ASTHENIA [None]
  - DYSGEUSIA [None]
  - HAEMATEMESIS [None]
  - HUNGER [None]
  - PAIN IN EXTREMITY [None]
  - PALPITATIONS [None]
  - TREMOR [None]
